FAERS Safety Report 9991986 (Version 1)
Quarter: 2014Q1

REPORT INFORMATION
  Report Type: Spontaneous
  Country: FR (occurrence: FR)
  Receive Date: 20140310
  Receipt Date: 20140310
  Transmission Date: 20141002
  Serious: Yes (Death)
  Sender: FDA-Public Use
  Company Number: FR-JNJFOC-20140301728

PATIENT
  Sex: 0

DRUGS (4)
  1. DORIPENEM [Suspect]
     Indication: PNEUMONIA
     Route: 042
  2. DORIPENEM [Suspect]
     Indication: PNEUMONIA
     Route: 042
  3. COLISTIN [Suspect]
     Indication: PNEUMONIA
     Route: 065
  4. AMINOGLYCOSIDE ANTIBIOTICS [Suspect]
     Indication: PNEUMONIA
     Route: 065

REACTIONS (1)
  - Death [Fatal]
